FAERS Safety Report 23298943 (Version 23)
Quarter: 2024Q4

REPORT INFORMATION
  Report Type: Report from Study
  Country: CA (occurrence: CA)
  Receive Date: 20231215
  Receipt Date: 20241129
  Transmission Date: 20250115
  Serious: Yes (Death, Hospitalization, Other)
  Sender: JOHNSON AND JOHNSON
  Company Number: CA-JNJFOC-20231057384

PATIENT
  Age: 74 Year
  Sex: Male
  Weight: 101 kg

DRUGS (24)
  1. REMICADE [Suspect]
     Active Substance: INFLIXIMAB
     Indication: Pyoderma gangrenosum
     Route: 041
     Dates: start: 20230817
  2. REMICADE [Suspect]
     Active Substance: INFLIXIMAB
     Dosage: EXPIRY- 26-JUN-2026
     Route: 041
     Dates: start: 20230817
  3. REMICADE [Suspect]
     Active Substance: INFLIXIMAB
     Route: 041
     Dates: start: 20230817
  4. REMICADE [Suspect]
     Active Substance: INFLIXIMAB
     Route: 041
     Dates: start: 20230817, end: 20240523
  5. REMICADE [Suspect]
     Active Substance: INFLIXIMAB
     Route: 041
  6. REMICADE [Suspect]
     Active Substance: INFLIXIMAB
     Route: 041
     Dates: start: 20230817
  7. RAMIPRIL [Concomitant]
     Active Substance: RAMIPRIL
     Indication: Hypertension
     Dosage: 10MG BY MOUTH DAILY?(DOSE DECREASE FROM 15 MG)
     Route: 048
     Dates: start: 20240829
  8. RAMIPRIL [Concomitant]
     Active Substance: RAMIPRIL
     Dosage: BY MOUTH DAILY
     Route: 048
  9. RAMIPRIL [Concomitant]
     Active Substance: RAMIPRIL
     Dosage: OD
     Route: 065
     Dates: start: 20240829
  10. RAMIPRIL [Concomitant]
     Active Substance: RAMIPRIL
     Dosage: DOSE REDUCED BY 1/3RD
     Route: 065
  11. INDAPAMIDE [Concomitant]
     Active Substance: INDAPAMIDE
     Indication: Product used for unknown indication
     Dosage: OD
     Route: 048
  12. VITAMIN D3 [Concomitant]
     Active Substance: CHOLECALCIFEROL
  13. CAPECITABINE [Concomitant]
     Active Substance: CAPECITABINE
  14. GEMCITABINE [Concomitant]
     Active Substance: GEMCITABINE
  15. PANTOPRAZOLE [Concomitant]
     Active Substance: PANTOPRAZOLE
     Dosage: 40MG DAILY BY MOUTH
     Route: 048
     Dates: start: 20240717
  16. RIVAROXABAN [Concomitant]
     Active Substance: RIVAROXABAN
     Dosage: 20MG BY MOUTH DAILY
     Route: 048
     Dates: start: 20240828
  17. CREON [Concomitant]
     Active Substance: PANCRELIPASE AMYLASE\PANCRELIPASE LIPASE\PANCRELIPASE PROTEASE
     Dosage: CREON 25 MINIMICROSP 52100U TAKEN 3 CAPSULES WITH MEALS AND 1 WITH SNACKS
     Dates: start: 20240831
  18. ONDANSETRON [Concomitant]
     Active Substance: ONDANSETRON
     Dosage: 8MG BY MOUTH TAKE ONE TABLET BEFORE SYSTEMIC CANCER THERAPY ON THE DAY OF TREATMENT - TO START WHEN
     Route: 048
     Dates: start: 20240903
  19. METOCLOPRAMIDE [Concomitant]
     Active Substance: METOCLOPRAMIDE
     Dosage: 5MG 2 TABS Q 4-6 HOURS PRN TO BEGIN WITH CHEMOTHERAPY TREATMENT
  20. LOPERAMIDE [Concomitant]
     Active Substance: LOPERAMIDE
     Dosage: 2MG - TO START WITH CHEMOTHERAPY
  21. CAPECITABINE [Concomitant]
     Active Substance: CAPECITABINE
     Dosage: STARTED ON 04-OCT-2024 ACH-CAPECITABINE 150MG - 2 TABS TWICE DAILY ON DAYS 1-21 OF TREATMENT
  22. CAPECITABINE [Concomitant]
     Active Substance: CAPECITABINE
     Dosage: 2 TABS TWICE DAILY ON DAYS 1-21 OF TREATMENT
  23. NOROMBY [Concomitant]
     Dosage: 40MG/0.4ML SUBCUTANEOUS DAILY
     Route: 058
  24. ATENOLOL [Concomitant]
     Active Substance: ATENOLOL
     Dosage: 100MG BY MOUTH DAILY
     Route: 048
     Dates: start: 20240828

REACTIONS (19)
  - Death [Fatal]
  - Lymphoma [Not Recovered/Not Resolved]
  - Fall [Unknown]
  - Liver disorder [Recovering/Resolving]
  - Cataract [Recovered/Resolved]
  - Fluid retention [Unknown]
  - Arrhythmia [Unknown]
  - Pyoderma gangrenosum [Recovering/Resolving]
  - Intestinal obstruction [Unknown]
  - Tooth extraction [Recovering/Resolving]
  - Dizziness [Not Recovered/Not Resolved]
  - Jaundice [Recovered/Resolved]
  - Fistula [Not Recovered/Not Resolved]
  - Diarrhoea [Not Recovered/Not Resolved]
  - Conjunctivitis [Recovered/Resolved]
  - Dyspnoea [Not Recovered/Not Resolved]
  - Blood pressure increased [Recovering/Resolving]
  - COVID-19 [Unknown]
  - Eczema [Recovering/Resolving]

NARRATIVE: CASE EVENT DATE: 20240101
